FAERS Safety Report 7050290-4 (Version None)
Quarter: 2010Q4

REPORT INFORMATION
  Report Type: 
  Country: None (occurrence: None)
  Receive Date: 20101013
  Receipt Date: 20100929
  Transmission Date: 20110411
  Serious: Yes (Other)
  Sender: FDA-Public Use
  Company Number: AUR-APL-2010-01305

PATIENT
  Age: 76 Year
  Sex: Male

DRUGS (6)
  1. SIMVASTATIN [Suspect]
     Dosage: 20MG-DAILY-ORAL
     Route: 048
     Dates: end: 20091001
  2. ANTABUSE [Suspect]
     Indication: ALCOHOL ABUSE
     Dosage: 200MG-DAILY-ORAL
     Route: 048
     Dates: start: 20080101, end: 20091007
  3. PROSCAR [Concomitant]
  4. ZESTRIL [Concomitant]
  5. ALBYL-E [Concomitant]
  6. LEVOTHYROXINE SODIUM [Concomitant]

REACTIONS (3)
  - COGNITIVE DISORDER [None]
  - MEMORY IMPAIRMENT [None]
  - THOUGHT BLOCKING [None]
